FAERS Safety Report 24758757 (Version 1)
Quarter: 2024Q4

REPORT INFORMATION
  Report Type: Spontaneous
  Country: FR (occurrence: FR)
  Receive Date: 20241220
  Receipt Date: 20241220
  Transmission Date: 20250114
  Serious: Yes (Other)
  Sender: TAKEDA
  Company Number: FR-EVENT-000606

PATIENT
  Age: 32 Year
  Sex: Male

DRUGS (2)
  1. PONATINIB [Suspect]
     Active Substance: PONATINIB
     Indication: Chronic myeloid leukaemia
     Dosage: 45 MILLIGRAM, 2/WEEK
     Dates: start: 202411
  2. PONATINIB [Suspect]
     Active Substance: PONATINIB
     Dosage: UNK UNK, QD
     Dates: start: 20241107, end: 20241121

REACTIONS (3)
  - Blood creatine phosphokinase increased [Recovered/Resolved]
  - Discomfort [Recovered/Resolved]
  - Myalgia [Recovered/Resolved]

NARRATIVE: CASE EVENT DATE: 20241115
